FAERS Safety Report 8282849-0 (Version None)
Quarter: 2012Q2

REPORT INFORMATION
  Report Type: 
  Country: None (occurrence: None)
  Receive Date: 20120413
  Receipt Date: 20120330
  Transmission Date: 20120825
  Serious: Yes (Hospitalization)
  Sender: FDA-Public Use
  Company Number: GB-ROCHE-1055457

PATIENT
  Sex: Female
  Weight: 71 kg

DRUGS (6)
  1. BLINDED BI 201335 (HCV PROTEASE INHIBITOR) [Suspect]
     Indication: HEPATITIS C
     Dosage: 1 ANZ
     Route: 048
     Dates: start: 20110707, end: 20111221
  2. PEGINTERFERON ALFA-2A [Suspect]
     Indication: HEPATITIS C
     Route: 058
     Dates: start: 20110707
  3. GABAPENTIN [Concomitant]
     Indication: BACK PAIN
     Route: 048
     Dates: start: 20100101
  4. MICROGESTIN 1.5/30 [Concomitant]
     Indication: CONTRACEPTION
     Route: 048
     Dates: start: 20100101
  5. AMITRIPTYLINE HYDROCHLORIDE [Concomitant]
     Indication: DEPRESSION
     Route: 048
  6. COPEGUS [Suspect]
     Indication: HEPATITIS C
     Route: 048
     Dates: start: 20110707

REACTIONS (3)
  - ABDOMINAL PAIN [None]
  - LOCAL SWELLING [None]
  - UPPER RESPIRATORY TRACT INFECTION [None]
